FAERS Safety Report 9336778 (Version 3)
Quarter: 2016Q4

REPORT INFORMATION
  Report Type: Report from Study
  Country: AT (occurrence: AT)
  Receive Date: 20130607
  Receipt Date: 20161021
  Transmission Date: 20170207
  Serious: Yes (Death, Hospitalization)
  Sender: FDA-Public Use
  Company Number: PHHO2013AT005871

PATIENT
  Age: 75 Year
  Sex: Female
  Weight: 112 kg

DRUGS (4)
  1. COMPARATOR FULVESTRANT [Suspect]
     Active Substance: FULVESTRANT
     Indication: BREAST CANCER METASTATIC
     Dosage: 500 MG, UNK
     Route: 058
     Dates: start: 20130319, end: 20130415
  2. CYCLOPHOSPHAMIDE. [Suspect]
     Active Substance: CYCLOPHOSPHAMIDE
     Indication: BREAST CANCER METASTATIC
     Dosage: 132 MG, UNK
     Route: 042
     Dates: start: 20130517
  3. EPIRUBICIN [Suspect]
     Active Substance: EPIRUBICIN
     Indication: BREAST CANCER METASTATIC
     Dosage: 132 MG, UNK
     Route: 042
     Dates: start: 20130517
  4. BKM120 [Suspect]
     Active Substance: BUPARLISIB HYDROCHLORIDE
     Indication: BREAST CANCER METASTATIC
     Dosage: 100 MG, QD
     Route: 048
     Dates: start: 20130422, end: 20130426

REACTIONS (2)
  - General physical health deterioration [Recovering/Resolving]
  - Respiratory tract infection [Fatal]

NARRATIVE: CASE EVENT DATE: 20130427
